FAERS Safety Report 6282620-5 (Version None)
Quarter: 2009Q3

REPORT INFORMATION
  Report Type: 
  Country: None (occurrence: None)
  Receive Date: 20090724
  Receipt Date: 20090714
  Transmission Date: 20100115
  Serious: Yes (Other)
  Sender: FDA-Public Use
  Company Number: PHHY2009DE29358

PATIENT
  Age: 48 Year
  Sex: Female

DRUGS (1)
  1. ZOLEDRONIC ACID [Suspect]
     Dosage: 4 MG, QMO
     Route: 042
     Dates: start: 20020401

REACTIONS (12)
  - BONE DISORDER [None]
  - BONE EROSION [None]
  - FACE AND MOUTH X-RAY ABNORMAL [None]
  - JAW OPERATION [None]
  - ORAL CAVITY FISTULA [None]
  - OSTEONECROSIS [None]
  - OSTEOSYNTHESIS [None]
  - PAIN IN JAW [None]
  - PERIODONTITIS [None]
  - PRIMARY SEQUESTRUM [None]
  - TOOTH EXTRACTION [None]
  - WOUND SECRETION [None]
